FAERS Safety Report 5960546-1 (Version None)
Quarter: 2008Q4

REPORT INFORMATION
  Report Type: 
  Country: None (occurrence: None)
  Receive Date: 20081120
  Receipt Date: 20081113
  Transmission Date: 20090506
  Serious: Yes (Other)
  Sender: FDA-Public Use
  Company Number: JP-GENENTECH-269801

PATIENT
  Sex: Male

DRUGS (12)
  1. RITUXAN [Suspect]
     Indication: MANTLE CELL LYMPHOMA
     Dosage: 570 MG, UNK
     Route: 042
     Dates: start: 20070920, end: 20080207
  2. LOXOPROFEN SODIUM [Suspect]
     Indication: PREMEDICATION
     Dosage: 1 TABLET, UNK
     Route: 048
     Dates: start: 20080117
  3. ADRIACIN [Concomitant]
     Indication: MANTLE CELL LYMPHOMA
     Dosage: 77 MG, UNK
     Dates: start: 20080830
  4. VINCRISTINE [Concomitant]
     Indication: MANTLE CELL LYMPHOMA
     Dosage: 2 MG, UNK
  5. ENDOXAN [Concomitant]
     Indication: MANTLE CELL LYMPHOMA
     Dosage: 1150 MG, UNK
  6. PREDNISOLONE [Concomitant]
     Indication: MANTLE CELL LYMPHOMA
     Dosage: 100 MG, UNK
  7. PERSANTINE [Concomitant]
     Indication: NEPHROTIC SYNDROME
     Dosage: 300 MG, QD
     Route: 048
  8. MICARDIS [Concomitant]
     Indication: HYPERTENSION
     Dosage: 40 MG, QD
     Route: 048
  9. HARNAL [Concomitant]
     Indication: BENIGN PROSTATIC HYPERPLASIA
     Dosage: 0.1 MG, QD
     Route: 048
  10. FELBINAC [Concomitant]
     Indication: DRUG USE FOR UNKNOWN INDICATION
     Route: 061
  11. POVIDONE IODINE [Concomitant]
     Indication: DRUG USE FOR UNKNOWN INDICATION
     Dosage: UNK
     Dates: start: 20070626
  12. ATARAX [Concomitant]
     Indication: PREMEDICATION
     Route: 048

REACTIONS (3)
  - PLEURAL EFFUSION [None]
  - PNEUMONIA CRYPTOCOCCAL [None]
  - PROTEIN URINE PRESENT [None]
